FAERS Safety Report 7357928-2 (Version None)
Quarter: 2011Q1

REPORT INFORMATION
  Report Type: 
  Country: None (occurrence: None)
  Receive Date: 20110307
  Receipt Date: 20101102
  Transmission Date: 20110831
  Serious: No
  Sender: FDA-Public Use
  Company Number: AECAN201000405

PATIENT
  Age: 47 Year
  Sex: Male
  Weight: 94 kg

DRUGS (2)
  1. PROLASTIN-C [Suspect]
     Indication: ALPHA-1 ANTI-TRYPSIN DEFICIENCY
     Dosage: 5880 MG; QW; IV
     Route: 042
     Dates: start: 20101103
  2. PROLASTIN [Suspect]
     Indication: ALPHA-1 ANTI-TRYPSIN DEFICIENCY
     Dosage: 5275 MG; QW; IV
     Route: 042
     Dates: start: 20100301, end: 20101001

REACTIONS (2)
  - CATHETER SITE SWELLING [None]
  - THROMBOSIS [None]
